FAERS Safety Report 15232205 (Version 2)
Quarter: 2019Q1

REPORT INFORMATION
  Report Type: Spontaneous
  Country: US (occurrence: US)
  Receive Date: 20180802
  Receipt Date: 20190104
  Transmission Date: 20190417
  Serious: Yes (Death)
  Sender: FDA-Public Use
  Company Number: US-PFIZER INC-2018303308

PATIENT
  Sex: Female
  Weight: 58.96 kg

DRUGS (1)
  1. CAMPTOSAR [Suspect]
     Active Substance: IRINOTECAN HYDROCHLORIDE
     Indication: RHABDOMYOSARCOMA
     Dosage: 80 MG, CYCLIC, (4ML BY MOUTH DAILY FOR DAYS ONE THROUGH FIVE AND DAYS EIGHT THROUGH 12)
     Route: 048
     Dates: end: 201501

REACTIONS (3)
  - Constipation [Unknown]
  - Incorrect route of product administration [Recovered/Resolved]
  - Neoplasm progression [Fatal]
